FAERS Safety Report 4432646-9 (Version None)
Quarter: 2004Q3

REPORT INFORMATION
  Report Type: 
  Country: None (occurrence: None)
  Receive Date: 20040820
  Receipt Date: 20040729
  Transmission Date: 20050211
  Serious: Yes (Other)
  Sender: FDA-Public Use
  Company Number: USA040465475

PATIENT
  Age: 63 Year
  Sex: Female

DRUGS (7)
  1. FORTEO [Suspect]
     Indication: OSTEOPOROSIS
     Dosage: UNK
     Route: 065
     Dates: start: 20031016
  2. TAMOXIFEN CITRATE [Concomitant]
  3. DURAGESIC [Concomitant]
  4. CELEBREX [Concomitant]
  5. FOSAMAX [Concomitant]
  6. CALCIUM [Concomitant]
  7. ACTONEL [Concomitant]

REACTIONS (7)
  - BLOOD CALCIUM ABNORMAL [None]
  - CONSTIPATION [None]
  - DISLOCATION OF VERTEBRA [None]
  - FALL [None]
  - LIBIDO DECREASED [None]
  - NERVE COMPRESSION [None]
  - PHARMACEUTICAL PRODUCT COMPLAINT [None]
